FAERS Safety Report 22257521 (Version 1)
Quarter: 2023Q2

REPORT INFORMATION
  Report Type: Spontaneous
  Country: US (occurrence: US)
  Receive Date: 20230427
  Receipt Date: 20230427
  Transmission Date: 20230721
  Serious: No
  Sender: FDA-Public Use
  Company Number: US-RECORDATI RARE DISEASE INC.-2023000713

PATIENT

DRUGS (11)
  1. CYSTADANE [Suspect]
     Active Substance: BETAINE
     Indication: Homocystinuria
     Dosage: 500 MILLIGRAM DAILY
     Route: 048
     Dates: start: 20200721, end: 2020
  2. CYSTADANE [Suspect]
     Active Substance: BETAINE
     Dosage: 1600 MILLIGRAM DAILY
     Route: 048
     Dates: start: 20201110, end: 2021
  3. CYSTADANE [Suspect]
     Active Substance: BETAINE
     Dosage: 2400 MILLIGRAM DAILY
     Route: 048
     Dates: start: 20210105, end: 2021
  4. CYSTADANE [Suspect]
     Active Substance: BETAINE
     Dosage: 3 GRAM DAILY
     Route: 048
     Dates: start: 20210409, end: 2021
  5. CYSTADANE [Suspect]
     Active Substance: BETAINE
     Dosage: 4 GRAM DAILY
     Route: 048
     Dates: start: 20210913, end: 2021
  6. CYSTADANE [Suspect]
     Active Substance: BETAINE
     Dosage: 5 GRAM, DAILY
     Route: 048
     Dates: start: 20211001, end: 2021
  7. CYSTADANE [Suspect]
     Active Substance: BETAINE
     Dosage: 6 GRAM DAILY
     Route: 048
     Dates: start: 20220322, end: 2022
  8. CYSTADANE [Suspect]
     Active Substance: BETAINE
     Dosage: 7 GRAM DAILY
     Route: 048
     Dates: start: 20220629
  9. CYANOCOBALAMIN [Concomitant]
     Active Substance: CYANOCOBALAMIN
     Indication: Product used for unknown indication
     Dosage: UNK
  10. DEPLIN [LEVOMEFOLIC ACID] [Concomitant]
     Indication: Product used for unknown indication
     Dosage: UNK
  11. DEXTROSE\WATER [Concomitant]
     Active Substance: DEXTROSE\WATER
     Indication: Product used for unknown indication
     Dosage: UNK

REACTIONS (2)
  - Sinusitis [Recovered/Resolved]
  - Off label use [Recovered/Resolved]

NARRATIVE: CASE EVENT DATE: 20220322
